FAERS Safety Report 5409477-6 (Version None)
Quarter: 2007Q3

REPORT INFORMATION
  Report Type: 
  Country: None (occurrence: None)
  Receive Date: 20070809
  Receipt Date: 20070730
  Transmission Date: 20080115
  Serious: Yes (Other)
  Sender: FDA-Public Use
  Company Number: US-AMGEN-KDL236702

PATIENT
  Sex: Female

DRUGS (1)
  1. ENBREL [Suspect]
     Indication: RHEUMATOID ARTHRITIS
     Route: 058
     Dates: start: 20070325

REACTIONS (5)
  - CATARACT [None]
  - CONVULSION [None]
  - MACULAR OEDEMA [None]
  - VISUAL DISTURBANCE [None]
  - VITREOUS FLOATERS [None]
